FAERS Safety Report 7568187-X (Version None)
Quarter: 2011Q2

REPORT INFORMATION
  Report Type: 
  Country: None (occurrence: None)
  Receive Date: 20110623
  Receipt Date: 20110616
  Transmission Date: 20111010
  Serious: Yes (Hospitalization, Disabling, Other)
  Sender: FDA-Public Use
  Company Number: BR-ABBOTT-11P-020-0712993-00

PATIENT
  Sex: Male
  Weight: 82 kg

DRUGS (6)
  1. LOSARTAN 100MG/ AMLODIPINE 5MG/ INDAPAMIDE 1.5MG [Concomitant]
     Indication: BLOOD PRESSURE
     Dosage: 100MG/5MG/1.5MG ONCE EVERY 24 HOURS
     Route: 048
  2. METHOTREXATE [Concomitant]
     Indication: PRODUCT USED FOR UNKNOWN INDICATION
  3. MUCOSOLVAN [Concomitant]
     Indication: INFLUENZA
     Dosage: 15 ML A DAY
     Route: 048
  4. HUMIRA [Suspect]
     Indication: PSORIATIC ARTHROPATHY
     Route: 058
     Dates: start: 20101028
  5. GLUCOFORMIN [Concomitant]
     Indication: DIABETES MELLITUS
     Route: 048
  6. DIAMICRON [Concomitant]
     Indication: DIABETES MELLITUS
     Route: 048

REACTIONS (8)
  - BEDRIDDEN [None]
  - INFLUENZA [None]
  - SINUSITIS [None]
  - QUADRIPLEGIA [None]
  - GUILLAIN-BARRE SYNDROME [None]
  - COUGH [None]
  - CONJUNCTIVITIS [None]
  - PYREXIA [None]
